FAERS Safety Report 21062500 (Version 1)
Quarter: 2022Q3

REPORT INFORMATION
  Report Type: Spontaneous
  Country: GB (occurrence: GB)
  Receive Date: 20220711
  Receipt Date: 20220711
  Transmission Date: 20221027
  Serious: Yes (Life-Threatening, Hospitalization, Other)
  Sender: FDA-Public Use
  Company Number: GB-AMGEN-GBRSP2022115117

PATIENT
  Age: 25 Year
  Sex: Male

DRUGS (4)
  1. FILGRASTIM [Suspect]
     Active Substance: FILGRASTIM
     Indication: Myelosuppression
     Dosage: 5 MICROGRAM/KILOGRAM, QD, FOR 3 DAYS (FROM 4 TO 6 DAYS POST-OVERDOSE)
     Route: 065
  2. FILGRASTIM [Suspect]
     Active Substance: FILGRASTIM
     Indication: Off label use
  3. SODIUM BICARBONATE [Concomitant]
     Active Substance: SODIUM BICARBONATE
     Indication: Rhabdomyolysis
     Dosage: UNK
     Route: 042
  4. SODIUM BICARBONATE [Concomitant]
     Active Substance: SODIUM BICARBONATE
     Indication: Metabolic acidosis

REACTIONS (9)
  - Pneumonia bacterial [Unknown]
  - Pneumonia fungal [Unknown]
  - Respiratory failure [Unknown]
  - Cardiovascular disorder [Unknown]
  - Hypotension [Unknown]
  - Rhabdomyolysis [Unknown]
  - Alopecia [Unknown]
  - Drug effective for unapproved indication [Unknown]
  - Off label use [Unknown]
